FAERS Safety Report 14311754 (Version 1)
Quarter: 2017Q4

REPORT INFORMATION
  Report Type: Spontaneous
  Country: DK (occurrence: DK)
  Receive Date: 20171221
  Receipt Date: 20171221
  Transmission Date: 20180321
  Serious: Yes (Life-Threatening, Hospitalization)
  Sender: FDA-Public Use
  Company Number: DK-CIPLA LTD.-2017DK24014

PATIENT

DRUGS (3)
  1. LEVETIRACETAM. [Suspect]
     Active Substance: LEVETIRACETAM
     Indication: EPILEPSY
     Dosage: 1000 MG, PER DAY  STYRKE: 500 MG
     Route: 048
     Dates: start: 20171012, end: 20171120
  2. IBUPROFEN. [Concomitant]
     Active Substance: IBUPROFEN
     Indication: PAIN
     Dosage: 400 MG, UNK, DOSIS: 1 TABLET EFTER BEHOV. MAXIMUM 1 TABLET DAGLIGT. STYRKE: 400 MG. ; AS NECESSARY
     Route: 048
     Dates: start: 20170820
  3. PARACETAMOL [Concomitant]
     Active Substance: ACETAMINOPHEN
     Indication: PAIN
     Dosage: 4000 MG, QD, STYRKE: 500 MG
     Route: 048
     Dates: start: 20160413

REACTIONS (7)
  - Tremor [Recovering/Resolving]
  - Anxiety [Recovering/Resolving]
  - Dizziness [Recovering/Resolving]
  - Mental status changes [Recovering/Resolving]
  - Hepatic enzyme increased [Not Recovered/Not Resolved]
  - Affect lability [Recovering/Resolving]
  - Condition aggravated [Recovering/Resolving]

NARRATIVE: CASE EVENT DATE: 201710
